FAERS Safety Report 7742484-7 (Version None)
Quarter: 2011Q3

REPORT INFORMATION
  Report Type: 
  Country: None (occurrence: None)
  Receive Date: 20110912
  Receipt Date: 20110907
  Transmission Date: 20111222
  Serious: Yes (Death, Other)
  Sender: FDA-Public Use
  Company Number: US-ASTELLAS-2011US004076

PATIENT
  Sex: Female

DRUGS (1)
  1. ERLOTINIB HYDROCHLORIDE [Suspect]
     Indication: LUNG CARCINOMA CELL TYPE UNSPECIFIED STAGE 0
     Dosage: 150 MG, UID/QD
     Route: 048
     Dates: start: 20110706

REACTIONS (4)
  - LUNG CARCINOMA CELL TYPE UNSPECIFIED STAGE IV [None]
  - ASTHENIA [None]
  - MALIGNANT PLEURAL EFFUSION [None]
  - DIARRHOEA [None]
